FAERS Safety Report 9802848 (Version 1)
Quarter: 2014Q1

REPORT INFORMATION
  Report Type: Spontaneous
  Country: US (occurrence: US)
  Receive Date: 20140108
  Receipt Date: 20140108
  Transmission Date: 20141002
  Serious: No
  Sender: FDA-Public Use
  Company Number: US-BAYER-2014-002661

PATIENT
  Sex: Female
  Weight: 69.84 kg

DRUGS (7)
  1. BETASERON [Suspect]
     Dosage: 0.25 MG, QOD
     Route: 058
  2. GABAPENTIN [Concomitant]
     Dosage: 400 MG, UNK
  3. FIORICET [Concomitant]
  4. ZANAFLEX [Concomitant]
     Dosage: 6 MG, UNK
  5. BIOTIN [Concomitant]
  6. VITAMIN D [Concomitant]
     Dosage: 1000 U, UNK
  7. MULTIVITAMIN [Concomitant]

REACTIONS (8)
  - Gait disturbance [Unknown]
  - Asthenia [Unknown]
  - Paraesthesia [Unknown]
  - Confusional state [Unknown]
  - Rhinorrhoea [Unknown]
  - Hypoaesthesia [Unknown]
  - Drug dose omission [None]
  - Memory impairment [None]
